FAERS Safety Report 8456790-4 (Version None)
Quarter: 2012Q2

REPORT INFORMATION
  Report Type: 
  Country: None (occurrence: None)
  Receive Date: 20120621
  Receipt Date: 20120612
  Transmission Date: 20120825
  Serious: Yes (Other)
  Sender: FDA-Public Use
  Company Number: US-ASTRAZENECA-2012SE39461

PATIENT
  Age: 63 Year
  Sex: Female
  Weight: 78 kg

DRUGS (8)
  1. CRESTOR [Suspect]
     Route: 048
     Dates: start: 20120101
  2. AMLODIPINE [Concomitant]
  3. CRESTOR [Suspect]
     Indication: BLOOD CHOLESTEROL INCREASED
     Route: 048
     Dates: start: 20100101
  4. BACLOFEN [Concomitant]
  5. FOLIC ACID [Concomitant]
  6. VALIUM [Concomitant]
  7. ASPIRIN [Concomitant]
  8. AVAPRO [Concomitant]

REACTIONS (9)
  - GROIN PAIN [None]
  - MYALGIA [None]
  - BLOOD TRIGLYCERIDES INCREASED [None]
  - DYSPNOEA [None]
  - BRAIN NEOPLASM [None]
  - WEIGHT INCREASED [None]
  - INTENTIONAL DRUG MISUSE [None]
  - SOMNOLENCE [None]
  - URINARY TRACT PAIN [None]
